FAERS Safety Report 9052236 (Version 2)
Quarter: 2013Q1

REPORT INFORMATION
  Report Type: Spontaneous
  Country: US (occurrence: US)
  Receive Date: 20130206
  Receipt Date: 20130301
  Transmission Date: 20140127
  Serious: No
  Sender: FDA-Public Use
  Company Number: US-009507513-1301USA013847

PATIENT
  Age: 53 None
  Sex: Male

DRUGS (3)
  1. PEGINTRON [Suspect]
     Indication: HEPATITIS C
     Dosage: UNK
     Route: 058
     Dates: start: 20130118
  2. RIBAVIRIN [Suspect]
     Indication: HEPATITIS C
     Dosage: UNK
     Route: 048
     Dates: start: 20130118
  3. VICTRELIS [Suspect]
     Indication: HEPATITIS C
     Dosage: UNK
     Route: 048
     Dates: start: 20130218

REACTIONS (8)
  - Myalgia [Unknown]
  - Fatigue [Unknown]
  - Irritability [Unknown]
  - Fatigue [Unknown]
  - Myalgia [Unknown]
  - Chest pain [Unknown]
  - Dyspnoea [Unknown]
  - Pollakiuria [Unknown]
